FAERS Safety Report 8068833-0 (Version None)
Quarter: 2012Q1

REPORT INFORMATION
  Report Type: 
  Country: None (occurrence: None)
  Receive Date: 20120125
  Receipt Date: 20120118
  Transmission Date: 20120608
  Serious: Yes (Hospitalization)
  Sender: FDA-Public Use
  Company Number: US-BIOGENIDEC-2011BI021238

PATIENT
  Age: 60 Year
  Sex: Female

DRUGS (2)
  1. TYSABRI [Suspect]
     Indication: MULTIPLE SCLEROSIS
     Route: 042
     Dates: start: 20080103, end: 20090917
  2. TYSABRI [Suspect]
     Route: 042
     Dates: start: 20100930

REACTIONS (13)
  - URINARY TRACT INFECTION [None]
  - MUSCLE SPASMS [None]
  - INFLUENZA LIKE ILLNESS [None]
  - RENAL FAILURE ACUTE [None]
  - MALAISE [None]
  - BLOOD POTASSIUM DECREASED [None]
  - MYALGIA [None]
  - MUSCLE TWITCHING [None]
  - HYPOTENSION [None]
  - PAIN IN EXTREMITY [None]
  - DEHYDRATION [None]
  - BLOOD MAGNESIUM DECREASED [None]
  - LETHARGY [None]
